FAERS Safety Report 19413880 (Version 3)
Quarter: 2021Q3

REPORT INFORMATION
  Report Type: Spontaneous
  Country: BR (occurrence: BR)
  Receive Date: 20210615
  Receipt Date: 20210914
  Transmission Date: 20211014
  Serious: Yes (Death, Hospitalization, Other)
  Sender: FDA-Public Use
  Company Number: BR-BRISTOL-MYERS SQUIBB COMPANY-BMS-2021-057089

PATIENT
  Age: 93 Year
  Sex: Male

DRUGS (3)
  1. IPILIMUMAB [Suspect]
     Active Substance: IPILIMUMAB
     Indication: RENAL CANCER
     Dosage: UNK
     Route: 065
     Dates: start: 20190107
  2. NIVOLUMAB [Suspect]
     Active Substance: NIVOLUMAB
     Dosage: UNK
     Route: 065
     Dates: start: 20190325
  3. NIVOLUMAB [Suspect]
     Active Substance: NIVOLUMAB
     Indication: RENAL CANCER
     Dosage: UNK
     Route: 065
     Dates: start: 20190107

REACTIONS (9)
  - Cardiac failure congestive [Unknown]
  - Asthenia [Unknown]
  - Lymphadenopathy [Unknown]
  - Anaemia [Unknown]
  - Diarrhoea [Unknown]
  - Death [Fatal]
  - Chronic kidney disease [Unknown]
  - Aortic valve disease [Unknown]
  - Clostridial infection [Unknown]

NARRATIVE: CASE EVENT DATE: 20190225
